FAERS Safety Report 5468563-5 (Version None)
Quarter: 2007Q3

REPORT INFORMATION
  Report Type: 
  Country: None (occurrence: None)
  Receive Date: 20070926
  Receipt Date: 20070921
  Transmission Date: 20080115
  Serious: Yes (Other)
  Sender: FDA-Public Use
  Company Number: US-PURDUE-USA_2007_0029310

PATIENT
  Sex: Male

DRUGS (3)
  1. OXYCONTIN [Suspect]
     Indication: PAIN
     Dosage: 20 MG, UNK
  2. OXYCONTIN [Suspect]
     Dosage: 10 MG, UNK
  3. PERCOCET [Concomitant]
     Indication: PAIN
     Dosage: UNK MG, UNK
     Route: 048

REACTIONS (10)
  - FEELING ABNORMAL [None]
  - HEPATOCELLULAR DAMAGE [None]
  - MALAISE [None]
  - MUSCLE TWITCHING [None]
  - NAUSEA [None]
  - PERSONALITY CHANGE [None]
  - REHABILITATION THERAPY [None]
  - RENAL DISORDER [None]
  - TOOTH LOSS [None]
  - VISUAL DISTURBANCE [None]
